FAERS Safety Report 5678194-X (Version None)
Quarter: 2008Q1

REPORT INFORMATION
  Report Type: 
  Country: None (occurrence: None)
  Receive Date: 20080325
  Receipt Date: 20080318
  Transmission Date: 20080703
  Serious: Yes (Death, Hospitalization, Other)
  Sender: FDA-Public Use
  Company Number: NO-ELI_LILLY_AND_COMPANY-NO200803004062

PATIENT
  Sex: Female

DRUGS (9)
  1. ZYPREXA [Suspect]
     Dosage: 2.5 MG, UNK
     Dates: start: 20080131, end: 20080205
  2. NYCOPLUS FOLSYRE [Concomitant]
     Dosage: 0.4 MG, UNK
     Route: 048
     Dates: start: 20070831
  3. ALBYL-E [Concomitant]
     Dosage: 75 MG, UNK
     Route: 048
     Dates: start: 20070704
  4. LEVOTHYROXINE SODIUM [Concomitant]
     Dosage: 100 UG, 5/W
     Route: 048
     Dates: start: 20070831
  5. IBUMETIN [Concomitant]
     Indication: PAIN IN EXTREMITY
     Dosage: 400 MG, AS NEEDED
     Route: 048
  6. LAKTULOSE [Concomitant]
     Dosage: 15 ML, 2/D
     Route: 048
     Dates: start: 20071114
  7. LACTULOSE [Concomitant]
     Indication: PAIN
     Dosage: 1 D/F, AS NEEDED
     Route: 048
     Dates: start: 20080120
  8. ACETAMINOPHEN [Concomitant]
     Dosage: 500 MG, AS NEEDED
     Dates: start: 20080114
  9. FURIX [Concomitant]
     Indication: DIURETIC THERAPY
     Dosage: 40 MG, UNK
     Dates: start: 20080114

REACTIONS (9)
  - ACUTE MYOCARDIAL INFARCTION [None]
  - ANURIA [None]
  - BLOOD GLUCOSE INCREASED [None]
  - BODY TEMPERATURE INCREASED [None]
  - INCONTINENCE [None]
  - MUSCLE RIGIDITY [None]
  - NEUROLEPTIC MALIGNANT SYNDROME [None]
  - SOMNOLENCE [None]
  - SPEECH DISORDER [None]
